FAERS Safety Report 24069288 (Version 1)
Quarter: 2024Q3

REPORT INFORMATION
  Report Type: Spontaneous
  Country: US (occurrence: US)
  Receive Date: 20240710
  Receipt Date: 20240710
  Transmission Date: 20241016
  Serious: No
  Sender: ROCHE
  Company Number: US-ROCHE-3387766

PATIENT
  Sex: Female
  Weight: 63.5 kg

DRUGS (4)
  1. ALECENSA [Suspect]
     Active Substance: ALECTINIB HYDROCHLORIDE
     Indication: Lung neoplasm malignant
     Dosage: 4 PILLS IN THE MORNING AND 4 PILLS IN THE EVENING
     Route: 048
     Dates: start: 20230630
  2. XANAX [Concomitant]
     Active Substance: ALPRAZOLAM
     Indication: Anxiety
     Dosage: AS NEEDED FOR ANXIETY
  3. LEVOTHYROXINE [Concomitant]
     Active Substance: LEVOTHYROXINE\LEVOTHYROXINE SODIUM
     Indication: Hypothyroidism
     Dosage: DAILY IN THE MORNING
  4. ZOFRAN [Concomitant]
     Active Substance: ONDANSETRON HYDROCHLORIDE
     Dosage: AS NEEDED

REACTIONS (2)
  - Intercepted product storage error [Unknown]
  - Photosensitivity reaction [Unknown]

NARRATIVE: CASE EVENT DATE: 20230704
